FAERS Safety Report 25115422 (Version 1)
Quarter: 2025Q1

REPORT INFORMATION
  Report Type: Spontaneous
  Country: US (occurrence: US)
  Receive Date: 20250324
  Receipt Date: 20250324
  Transmission Date: 20250409
  Serious: No
  Sender: BAYER HEALTHCARE PHARMACEUTICALS INC.
  Company Number: US-BAYER-2025A036767

PATIENT
  Age: 74 Year
  Sex: Male

DRUGS (1)
  1. KERENDIA [Suspect]
     Active Substance: FINERENONE

REACTIONS (7)
  - Oedema peripheral [None]
  - Diarrhoea [None]
  - Abnormal faeces [None]
  - Musculoskeletal stiffness [None]
  - Renal pain [Recovering/Resolving]
  - Proteinuria [Recovering/Resolving]
  - Wrong technique in product usage process [None]
